FAERS Safety Report 8564308-0 (Version None)
Quarter: 2012Q3

REPORT INFORMATION
  Report Type: 
  Country: None (occurrence: None)
  Receive Date: 20120803
  Receipt Date: 20120724
  Transmission Date: 20120928
  Serious: Yes (Hospitalization)
  Sender: FDA-Public Use
  Company Number: US-JNJFOC-20120700397

PATIENT
  Sex: Female
  Weight: 43.55 kg

DRUGS (7)
  1. REMICADE [Suspect]
     Indication: CROHN'S DISEASE
     Route: 042
     Dates: start: 20120329
  2. REMICADE [Suspect]
     Route: 042
     Dates: start: 20120413
  3. FERROUS SULFATE TAB [Concomitant]
     Indication: HAEMOGLOBIN DECREASED
  4. MULTI-VITAMINS [Concomitant]
  5. REMICADE [Suspect]
     Route: 042
     Dates: start: 20120511, end: 20120511
  6. ZOFRAN [Concomitant]
     Indication: NAUSEA
  7. ENTOCORT EC [Concomitant]
     Indication: CROHN'S DISEASE
     Dates: end: 20120401

REACTIONS (16)
  - TENDERNESS [None]
  - INFECTION [None]
  - MIGRAINE [None]
  - HAEMOGLOBIN DECREASED [None]
  - ABDOMINAL PAIN UPPER [None]
  - ROAD TRAFFIC ACCIDENT [None]
  - VOMITING [None]
  - HEADACHE [None]
  - PYREXIA [None]
  - CHILLS [None]
  - PAIN [None]
  - FATIGUE [None]
  - POST-TRAUMATIC NECK SYNDROME [None]
  - TREMOR [None]
  - NAUSEA [None]
  - BACK PAIN [None]
